FAERS Safety Report 4780314-6 (Version None)
Quarter: 2005Q3

REPORT INFORMATION
  Report Type: 
  Country: None (occurrence: None)
  Receive Date: 20050926
  Receipt Date: 20050909
  Transmission Date: 20060218
  Serious: Yes (Death, Life-Threatening, Hospitalization)
  Sender: FDA-Public Use
  Company Number: 216382

PATIENT
  Age: 59 Year
  Sex: Female

DRUGS (9)
  1. BEVACIZUMAB(BEVACIZUMAB) PWDR + SOLVENT,INFUSION SOLN, 100MG [Suspect]
     Indication: OVARIAN CANCER
     Dosage: 825 MG, Q3W, INTRAVENOUS
     Route: 042
     Dates: start: 20050517, end: 20050628
  2. NIFEDIPINE [Concomitant]
  3. PAXIL [Concomitant]
  4. NEUTRA-PHOS (POTASSIUM PHOSPHATE, DIBASIC, POTASSIUM PHOSPHATE, MONOBA [Concomitant]
  5. MAGNESIUM SULFATE [Concomitant]
  6. LACTULOSE [Concomitant]
  7. MEGACE [Concomitant]
  8. PRILOSEC [Concomitant]
  9. CIPROFLOXACIN HCL [Concomitant]

REACTIONS (17)
  - BLOOD MAGNESIUM INCREASED [None]
  - BLOOD PHOSPHORUS DECREASED [None]
  - CONTRAST MEDIA REACTION [None]
  - CONVULSION [None]
  - DISEASE PROGRESSION [None]
  - GENERAL PHYSICAL HEALTH DETERIORATION [None]
  - HAEMATOCRIT DECREASED [None]
  - HAEMOGLOBIN DECREASED [None]
  - HEART RATE INCREASED [None]
  - HYDRONEPHROSIS [None]
  - HYPERTENSIVE ENCEPHALOPATHY [None]
  - INFARCTION [None]
  - INTESTINAL OBSTRUCTION [None]
  - NUCLEAR MAGNETIC RESONANCE IMAGING BRAIN ABNORMAL [None]
  - OVARIAN CANCER METASTATIC [None]
  - RENAL MASS [None]
  - VOMITING [None]
